FAERS Safety Report 7074947-4 (Version None)
Quarter: 2010Q4

REPORT INFORMATION
  Report Type: 
  Country: None (occurrence: None)
  Receive Date: 20101029
  Receipt Date: 20101011
  Transmission Date: 20110411
  Serious: Yes (Other)
  Sender: FDA-Public Use
  Company Number: FR-AMGEN-UK444589

PATIENT

DRUGS (1)
  1. DARBEPOETIN ALFA [Suspect]
     Dosage: 30 A?G, Q3WK

REACTIONS (1)
  - CACHEXIA [None]
